FAERS Safety Report 16724599 (Version 1)
Quarter: 2020Q3

REPORT INFORMATION
  Report Type: Spontaneous
  Country: US (occurrence: US)
  Receive Date: 20190704
  Receipt Date: 20190704
  Transmission Date: 20201105
  Serious: No
  Sender: FDA-Public Use
  Company Number: None

PATIENT
  Age: 58 Year
  Sex: Male

DRUGS (1)
  1. NETARSUDIL. [Suspect]
     Active Substance: NETARSUDIL
     Indication: GLAUCOMA
     Dates: start: 20180831

REACTIONS (3)
  - Pruritus [None]
  - Erythema [None]
  - Eye swelling [None]
